FAERS Safety Report 9046918 (Version 5)
Quarter: 2013Q4

REPORT INFORMATION
  Report Type: Spontaneous
  Country: JP (occurrence: JP)
  Receive Date: 20130204
  Receipt Date: 20131231
  Transmission Date: 20140711
  Serious: Yes (Other)
  Sender: FDA-Public Use
  Company Number: JP-JNJFOC-20130112776

PATIENT
  Age: 57 Year
  Sex: Female
  Weight: 50 kg

DRUGS (3)
  1. REMICADE [Suspect]
     Indication: RHEUMATOID ARTHRITIS
     Dosage: 2ND DOSE
     Route: 042
     Dates: start: 20121222
  2. REMICADE [Suspect]
     Indication: RHEUMATOID ARTHRITIS
     Dosage: 1ST DOSE
     Route: 042
     Dates: start: 20121206
  3. BONOTEO [Concomitant]
     Indication: OSTEOPOROSIS
     Route: 048
     Dates: start: 20121206

REACTIONS (7)
  - Rash pustular [Recovering/Resolving]
  - Weight decreased [Unknown]
  - Pustular psoriasis [Recovering/Resolving]
  - Arthritis [Unknown]
  - Adverse event [Unknown]
  - Feeling abnormal [Unknown]
  - Alopecia [Recovered/Resolved]
